FAERS Safety Report 14196097 (Version 1)
Quarter: 2017Q4

REPORT INFORMATION
  Report Type: Spontaneous
  Country: US (occurrence: US)
  Receive Date: 20171116
  Receipt Date: 20171116
  Transmission Date: 20180321
  Serious: No
  Sender: FDA-Public Use
  Company Number: US-BAUSCH-BL-2017-000865

PATIENT
  Sex: Female
  Weight: 55.39 kg

DRUGS (7)
  1. XENAZINE [Suspect]
     Active Substance: TETRABENAZINE
     Dosage: TWO TABLETS THREE TIMES DAILY
     Route: 048
     Dates: start: 201611, end: 201703
  2. XENAZINE [Suspect]
     Active Substance: TETRABENAZINE
     Indication: TOURETTE^S DISORDER
     Route: 048
     Dates: start: 201511
  3. FLUPHENAZINE [Concomitant]
     Active Substance: FLUPHENAZINE
     Indication: PRODUCT USED FOR UNKNOWN INDICATION
     Route: 048
     Dates: start: 201511
  4. XENAZINE [Suspect]
     Active Substance: TETRABENAZINE
     Dosage: HALF TABLET OF 25 MG AT BEDTIME (NOV OR DEC/2015)
     Route: 048
     Dates: start: 2015
  5. XENAZINE [Suspect]
     Active Substance: TETRABENAZINE
     Route: 048
     Dates: start: 201512
  6. XENAZINE [Suspect]
     Active Substance: TETRABENAZINE
     Dosage: (NOV OR DEC/2015)
     Route: 048
     Dates: start: 2015
  7. TETRABENAZINE. [Suspect]
     Active Substance: TETRABENAZINE
     Indication: TOURETTE^S DISORDER
     Route: 048
     Dates: start: 201703

REACTIONS (8)
  - Off label use [Recovered/Resolved]
  - Laryngitis [Unknown]
  - Malaise [Unknown]
  - Fatigue [Unknown]
  - Somnolence [Unknown]
  - Musculoskeletal pain [Unknown]
  - Drug ineffective for unapproved indication [Unknown]
  - Ear infection [Unknown]

NARRATIVE: CASE EVENT DATE: 2015
